FAERS Safety Report 4945266-4 (Version None)
Quarter: 2006Q1

REPORT INFORMATION
  Report Type: 
  Country: None (occurrence: None)
  Receive Date: 20060117
  Receipt Date: 20050308
  Transmission Date: 20060701
  Serious: Yes (Hospitalization)
  Sender: FDA-Public Use
  Company Number: 398188

PATIENT
  Age: 17 Year
  Sex: Male

DRUGS (1)
  1. ROCEPHIN [Suspect]

REACTIONS (4)
  - EOSINOPHIL COUNT INCREASED [None]
  - HYPERSENSITIVITY [None]
  - RASH [None]
  - STRAWBERRY TONGUE [None]
